FAERS Safety Report 4314713-3 (Version None)
Quarter: 2004Q1

REPORT INFORMATION
  Report Type: 
  Country: None (occurrence: None)
  Receive Date: 20040309
  Receipt Date: 20040309
  Transmission Date: 20041129
  Serious: Yes (Hospitalization)
  Sender: FDA-Public Use
  Company Number: None

PATIENT
  Sex: Female

DRUGS (1)
  1. CELECOXIB 400 MG PHARMACIA [Suspect]
     Indication: NON-SMALL CELL LUNG CANCER
     Dosage: 400 MG BID ORAL
     Route: 048
     Dates: start: 20030606, end: 20040309

REACTIONS (5)
  - ANGINA PECTORIS [None]
  - ARTERIOSPASM CORONARY [None]
  - BUNDLE BRANCH BLOCK LEFT [None]
  - CHEST PAIN [None]
  - PULMONARY EMBOLISM [None]
